FAERS Safety Report 8132799-5 (Version None)
Quarter: 2012Q1

REPORT INFORMATION
  Report Type: 
  Country: None (occurrence: None)
  Receive Date: 20120213
  Receipt Date: 20120202
  Transmission Date: 20120608
  Serious: Yes (Life-Threatening, Hospitalization)
  Sender: FDA-Public Use
  Company Number: IN-MERCK-1201USA01873

PATIENT
  Age: 54 Year
  Sex: Male

DRUGS (1)
  1. CANCIDAS [Suspect]
     Indication: FUNGAL INFECTION
     Route: 065
     Dates: start: 20120110, end: 20120110

REACTIONS (4)
  - ECCHYMOSIS [None]
  - TACHYCARDIA [None]
  - CARDIOVASCULAR DISORDER [None]
  - BLOOD PRESSURE FLUCTUATION [None]
